FAERS Safety Report 6625795-8 (Version None)
Quarter: 2010Q1

REPORT INFORMATION
  Report Type: 
  Country: None (occurrence: None)
  Receive Date: 20100310
  Receipt Date: 20100305
  Transmission Date: 20100710
  Serious: Yes (Other)
  Sender: FDA-Public Use
  Company Number: DE-MERCK-1003DEU00025

PATIENT
  Sex: Female

DRUGS (2)
  1. JANUVIA [Suspect]
     Route: 048
  2. ACTOS [Concomitant]
     Route: 048

REACTIONS (1)
  - CARDIAC FAILURE [None]
